FAERS Safety Report 5750212-X (Version None)
Quarter: 2008Q2

REPORT INFORMATION
  Report Type: 
  Country: None (occurrence: None)
  Receive Date: 20080527
  Receipt Date: 20080519
  Transmission Date: 20081010
  Serious: Yes (Death, Life-Threatening, Hospitalization, Disabling, Other)
  Sender: FDA-Public Use
  Company Number: DK-PFIZER INC-2008042862

PATIENT
  Sex: Male

DRUGS (6)
  1. DIFLUCAN [Suspect]
     Indication: SEPSIS
     Dosage: TEXT:2 MG/ML
     Route: 042
     Dates: start: 20080421, end: 20080425
  2. LAMICTAL [Interacting]
     Indication: MUSCLE SPASMS
     Route: 048
  3. MERONEM [Interacting]
     Indication: SEPSIS
     Route: 042
  4. CIPROFLOXACIN HCL [Interacting]
     Indication: SEPSIS
     Dosage: TEXT:2MG/ML
     Route: 042
     Dates: start: 20080421, end: 20080425
  5. METRONIDAZOLE HCL [Interacting]
     Indication: SEPSIS
     Dosage: DAILY DOSE:1500MG
     Route: 042
     Dates: start: 20080421, end: 20080424
  6. INNOHEP [Concomitant]
     Route: 058
     Dates: start: 20080421, end: 20080425

REACTIONS (3)
  - DRUG INTERACTION [None]
  - MULTI-ORGAN FAILURE [None]
  - RASH MACULAR [None]
